FAERS Safety Report 18543407 (Version 1)
Quarter: 2020Q4

REPORT INFORMATION
  Report Type: Spontaneous
  Country: BG (occurrence: BG)
  Receive Date: 20201124
  Receipt Date: 20201124
  Transmission Date: 20210114
  Serious: Yes (Death, Other)
  Sender: FDA-Public Use
  Company Number: BG-TAKEDA-BG202028639

PATIENT

DRUGS (49)
  1. DEGAN [Suspect]
     Active Substance: METOCLOPRAMIDE HYDROCHLORIDE
     Indication: PRODUCT USED FOR UNKNOWN INDICATION
     Route: 065
  2. ENTEROL [SACCHAROMYCES BOULARDII] [Suspect]
     Active Substance: SACCHAROMYCES CEREVISIAE
     Dosage: 250 MILLIGRAM
     Route: 065
  3. ROACTEMRA [Suspect]
     Active Substance: TOCILIZUMAB
     Indication: COVID-19 PNEUMONIA
     Dosage: 200 MG/20ML
     Route: 065
     Dates: start: 20200101
  4. STEROFUNDIN [Suspect]
     Active Substance: CALCIUM CHLORIDE\MAGNESIUM CHLORIDE\POTASSIUM CHLORIDE\SODIUM ACETATE\SODIUM CHLORIDE
     Indication: PRODUCT USED FOR UNKNOWN INDICATION
     Dosage: 500 L - ECO-VIAL - X 500 ML
     Route: 065
  5. SODIUM CHLORIDE. [Suspect]
     Active Substance: SODIUM CHLORIDE
     Indication: PRODUCT USED FOR UNKNOWN INDICATION
     Dosage: 100 ML ECO-BOTTLE BY PRESCRIPTION
     Route: 065
  6. VITAMIN C [Suspect]
     Active Substance: ASCORBIC ACID
     Dosage: 10 5 5 ML
     Route: 065
  7. FUROSEMIDE. [Suspect]
     Active Substance: FUROSEMIDE
     Dosage: 10 MILLIGRAM PER MILLILITRE
     Route: 065
  8. CHLOPHAZOLIN [Suspect]
     Active Substance: CLONIDINE HYDROCHLORIDE
     Dosage: 0.15 MILLIGRAM PER MILLILITRE
     Route: 065
  9. QUAMATEL [Suspect]
     Active Substance: FAMOTIDINE
     Indication: PRODUCT USED FOR UNKNOWN INDICATION
     Dosage: 20 MILLIGRAM
     Route: 065
  10. SUMAMED [Suspect]
     Active Substance: AZITHROMYCIN ANHYDROUS
     Indication: PRODUCT USED FOR UNKNOWN INDICATION
     Route: 065
  11. CALCIUM GLUCONATE. [Suspect]
     Active Substance: CALCIUM GLUCONATE
     Dosage: 8.94 MILLIGRAM PER MILLILITRE
     Route: 065
  12. VANCOCIN [Suspect]
     Active Substance: VANCOMYCIN HYDROCHLORIDE
     Indication: PRODUCT USED FOR UNKNOWN INDICATION
     Dosage: 1 GRAM
     Route: 065
  13. METAMIZOLE [Suspect]
     Active Substance: METAMIZOLE
     Indication: PRODUCT USED FOR UNKNOWN INDICATION
     Dosage: 500 MILLIGRAM PER MILLILITRE
     Route: 065
  14. PARACETAMOL [Suspect]
     Active Substance: ACETAMINOPHEN
     Indication: PRODUCT USED FOR UNKNOWN INDICATION
     Dosage: 10 MG/ML
     Route: 065
  15. SOMAZINA [CITICOLINE] [Suspect]
     Active Substance: CITICOLINE
     Dosage: 1000 MG 4 ML
     Route: 065
  16. MEROPENEM. [Suspect]
     Active Substance: MEROPENEM
     Indication: PRODUCT USED FOR UNKNOWN INDICATION
     Dosage: 3X1.0
     Route: 065
  17. VITAMIN C [Suspect]
     Active Substance: ASCORBIC ACID
     Indication: PRODUCT USED FOR UNKNOWN INDICATION
     Route: 065
  18. BROMHEXINE [Suspect]
     Active Substance: BROMHEXINE
     Dosage: 4 MG 2 ML
     Route: 065
  19. NUTRIFLEX OMEGA PLUS [Suspect]
     Active Substance: AMINO ACIDS\DEXTROSE\ELECTROLYTES NOS\SOYBEAN OIL
     Dosage: 875 MILLILITER
     Route: 065
  20. FRAXIPARINE [Suspect]
     Active Substance: NADROPARIN CALCIUM
     Indication: PRODUCT USED FOR UNKNOWN INDICATION
     Dosage: 0.6 MILLILITER
     Route: 065
  21. ESOMEPRAZOLE. [Suspect]
     Active Substance: ESOMEPRAZOLE MAGNESIUM
     Indication: PRODUCT USED FOR UNKNOWN INDICATION
     Dosage: 40 MILLIGRAM
     Route: 065
  22. CALCIUM GLUCONATE. [Suspect]
     Active Substance: CALCIUM GLUCONATE
     Indication: PRODUCT USED FOR UNKNOWN INDICATION
     Dosage: UNK
     Route: 065
  23. CARSIL [Suspect]
     Active Substance: DIETARY SUPPLEMENT\HERBALS\MILK THISTLE
     Indication: PRODUCT USED FOR UNKNOWN INDICATION
     Dosage: UNK
     Route: 065
  24. CARSIL [Suspect]
     Active Substance: DIETARY SUPPLEMENT\HERBALS\MILK THISTLE
     Dosage: 90 MILLIGRAM
     Route: 065
  25. KLACID [CLARITHROMYCIN] [Concomitant]
     Active Substance: CLARITHROMYCIN
     Indication: PRODUCT USED FOR UNKNOWN INDICATION
  26. FUROSEMIDE. [Suspect]
     Active Substance: FUROSEMIDE
     Indication: PRODUCT USED FOR UNKNOWN INDICATION
     Dosage: UNK
     Route: 065
  27. FLEXIDOL RELAX [Suspect]
     Active Substance: MELOXICAM\PRIDINOL MESILATE
     Indication: PRODUCT USED FOR UNKNOWN INDICATION
     Dosage: 5 MG/ML
     Route: 065
  28. ALBUNORM [Suspect]
     Active Substance: ALBUMIN HUMAN
     Indication: PRODUCT USED FOR UNKNOWN INDICATION
     Route: 065
  29. DEGAN [Suspect]
     Active Substance: METOCLOPRAMIDE HYDROCHLORIDE
     Dosage: 10 MG - 2 ML
     Route: 065
  30. AZITROX [Suspect]
     Active Substance: AZITHROMYCIN
     Indication: PRODUCT USED FOR UNKNOWN INDICATION
     Route: 065
  31. DIFLAZON [Suspect]
     Active Substance: FLUCONAZOLE
     Indication: PRODUCT USED FOR UNKNOWN INDICATION
     Dosage: UNK
     Route: 065
  32. MEROPEN [MEROPENEM] [Suspect]
     Active Substance: MEROPENEM
     Indication: PRODUCT USED FOR UNKNOWN INDICATION
     Dosage: 3X1.0
     Route: 065
  33. NUTRIFLEX OMEGA PLUS [Suspect]
     Active Substance: AMINO ACIDS\DEXTROSE\ELECTROLYTES NOS\SOYBEAN OIL
     Indication: PRODUCT USED FOR UNKNOWN INDICATION
     Dosage: UNK
     Route: 065
  34. DEXAMETHASONE. [Suspect]
     Active Substance: DEXAMETHASONE
     Indication: PRODUCT USED FOR UNKNOWN INDICATION
     Route: 065
  35. CHLOROQUINE PHOSPHATE. [Suspect]
     Active Substance: CHLOROQUINE PHOSPHATE
     Indication: PRODUCT USED FOR UNKNOWN INDICATION
     Dosage: 2X1 TABLETS
     Route: 065
  36. METHYLPREDNISOLONE. [Suspect]
     Active Substance: METHYLPREDNISOLONE
     Dosage: 40 MG / 2 ML
     Route: 065
  37. AZAX [Concomitant]
     Indication: DIARRHOEA
  38. DIFLAZON [Suspect]
     Active Substance: FLUCONAZOLE
     Dosage: 2 MILLIGRAM PER MILLILITRE
     Route: 065
  39. CHLOPHAZOLIN [Suspect]
     Active Substance: CLONIDINE HYDROCHLORIDE
     Indication: PRODUCT USED FOR UNKNOWN INDICATION
     Dosage: UNK
     Route: 065
  40. ROACTEMRA [Suspect]
     Active Substance: TOCILIZUMAB
     Dosage: 400 MG/20 ML
     Route: 065
     Dates: start: 2020
  41. METHYLPREDNISOLONE. [Suspect]
     Active Substance: METHYLPREDNISOLONE
     Indication: PRODUCT USED FOR UNKNOWN INDICATION
     Route: 065
  42. CLEXANE [Suspect]
     Active Substance: ENOXAPARIN SODIUM
     Dosage: 60 MG/0.60 ML
     Route: 065
  43. SINEQUAN [Suspect]
     Active Substance: DOXEPIN HYDROCHLORIDE
     Indication: PRODUCT USED FOR UNKNOWN INDICATION
     Dosage: UNK
     Route: 065
  44. BROMHEXINE [Suspect]
     Active Substance: BROMHEXINE
     Indication: PRODUCT USED FOR UNKNOWN INDICATION
     Route: 065
  45. DEXAMETHASONE. [Suspect]
     Active Substance: DEXAMETHASONE
     Dosage: 4 MILLIGRAM PER MILLILITRE
     Route: 065
  46. ENTEROL [SACCHAROMYCES BOULARDII] [Suspect]
     Active Substance: SACCHAROMYCES CEREVISIAE
     Indication: PRODUCT USED FOR UNKNOWN INDICATION
     Route: 065
  47. CLEXANE [Suspect]
     Active Substance: ENOXAPARIN SODIUM
     Indication: PRODUCT USED FOR UNKNOWN INDICATION
     Route: 065
  48. SERUM GLUCOSE [Suspect]
     Active Substance: DEXTROSE
     Indication: PRODUCT USED FOR UNKNOWN INDICATION
     Dosage: 500 MILLILITER
     Route: 042
  49. SOMAZINA [CITICOLINE] [Suspect]
     Active Substance: CITICOLINE
     Indication: PRODUCT USED FOR UNKNOWN INDICATION
     Dosage: UNK
     Route: 065

REACTIONS (15)
  - Hypertension [Fatal]
  - Cardiovascular insufficiency [Fatal]
  - Hypoxia [Fatal]
  - Acute respiratory failure [Fatal]
  - Tachypnoea [Fatal]
  - Pulmonary oedema [Fatal]
  - Brain oedema [Fatal]
  - Cardiac arrest [Fatal]
  - Embolism [Fatal]
  - COVID-19 pneumonia [Fatal]
  - Intentional product use issue [Unknown]
  - Confusional state [Fatal]
  - Hallucination [Fatal]
  - Encephalopathy [Fatal]
  - Off label use [Unknown]

NARRATIVE: CASE EVENT DATE: 20200731
